FAERS Safety Report 9148654 (Version 1)
Quarter: 2013Q1

REPORT INFORMATION
  Report Type: Spontaneous
  Country: US (occurrence: US)
  Receive Date: 20130308
  Receipt Date: 20130308
  Transmission Date: 20140127
  Serious: Yes (Other)
  Sender: FDA-Public Use
  Company Number: US-ENDO PHARMACEUTICALS INC.-OPCR20122012

PATIENT
  Age: 27 None
  Sex: Male

DRUGS (2)
  1. OPANA ER 30MG [Suspect]
     Indication: PRODUCT USED FOR UNKNOWN INDICATION
     Route: 048
     Dates: start: 2012
  2. FLU SHOT [Suspect]
     Indication: INFLUENZA IMMUNISATION
     Route: 065
     Dates: start: 20121103, end: 20121103

REACTIONS (5)
  - Convulsion [Recovered/Resolved]
  - Muscular weakness [Recovered/Resolved]
  - Joint injury [Not Recovered/Not Resolved]
  - Fall [Recovered/Resolved]
  - Rib fracture [Not Recovered/Not Resolved]
